FAERS Safety Report 7229194-X (Version None)
Quarter: 2011Q1

REPORT INFORMATION
  Report Type: 
  Country: None (occurrence: None)
  Receive Date: 20110117
  Receipt Date: 20110105
  Transmission Date: 20110831
  Serious: Yes (Other)
  Sender: FDA-Public Use
  Company Number: US-JNJCH-2011000666

PATIENT
  Age: 38 Year
  Sex: Female
  Weight: 82.6 kg

DRUGS (2)
  1. ROLAIDS TAB [Suspect]
     Indication: GASTROOESOPHAGEAL REFLUX DISEASE
     Dosage: TEXT:1-2 UP TO 10 TIMES DAILY
     Route: 048
     Dates: start: 20040105, end: 20101208
  2. ROLAIDS TAB [Suspect]
     Indication: DYSPEPSIA

REACTIONS (7)
  - OVERDOSE [None]
  - TOOTH FRACTURE [None]
  - ABDOMINAL PAIN [None]
  - CONSTIPATION [None]
  - TOOTHACHE [None]
  - ABDOMINAL DISTENSION [None]
  - OFF LABEL USE [None]
